FAERS Safety Report 24227664 (Version 1)
Quarter: 2024Q3

REPORT INFORMATION
  Report Type: Spontaneous
  Country: JP (occurrence: None)
  Receive Date: 20240820
  Receipt Date: 20240820
  Transmission Date: 20241017
  Serious: Yes (Death, Hospitalization, Other)
  Sender: ACS DOBFAR
  Company Number: JP-ACS-20240296

PATIENT
  Age: 81 Year
  Sex: Male

DRUGS (3)
  1. CEFTRIAXONE [Interacting]
     Active Substance: CEFTRIAXONE\CEFTRIAXONE SODIUM
     Indication: Infectious pleural effusion
  2. LANSOPRAZOLE [Interacting]
     Active Substance: LANSOPRAZOLE
  3. TRAZODONE [Suspect]
     Active Substance: TRAZODONE HYDROCHLORIDE

REACTIONS (2)
  - Sudden death [Fatal]
  - Drug interaction [Fatal]
